FAERS Safety Report 5278089-X (Version None)
Quarter: 2007Q1

REPORT INFORMATION
  Report Type: 
  Country: None (occurrence: None)
  Receive Date: 20061213
  Receipt Date: 20060317
  Transmission Date: 20070707
  Serious: No
  Sender: FDA-Public Use
  Company Number: 2006UW04645

PATIENT
  Age: 10 Year
  Sex: Male
  Weight: 35.38 kg

DRUGS (5)
  1. SEROQUEL [Suspect]
     Indication: ATTENTION DEFICIT/HYPERACTIVITY DISORDER
     Dosage: 75 MG PO
     Route: 048
     Dates: start: 20060303, end: 20060310
  2. SEROQUEL [Suspect]
     Indication: BIPOLAR DISORDER
     Dosage: 75 MG PO
     Route: 048
     Dates: start: 20060303, end: 20060310
  3. ADVAIR DISKUS 100/50 [Concomitant]
  4. CLONIDINE [Concomitant]
  5. RISPERDAL [Concomitant]

REACTIONS (1)
  - TARDIVE DYSKINESIA [None]
